FAERS Safety Report 7501090-X (Version None)
Quarter: 2011Q2

REPORT INFORMATION
  Report Type: 
  Country: None (occurrence: None)
  Receive Date: 20110524
  Receipt Date: 20110519
  Transmission Date: 20111010
  Serious: Yes (Other)
  Sender: FDA-Public Use
  Company Number: BR-PFIZER INC-BR-WYE-H15150010

PATIENT
  Age: 44 Year
  Sex: Female
  Weight: 73.5 kg

DRUGS (13)
  1. CELLULASE/DEHYDROCHOLIC ACID/METOCLOPRAMIDE/ PANCREATIN/PEPSIN/SIMETIC [Concomitant]
     Indication: GASTROOESOPHAGEAL REFLUX DISEASE
  2. PANTOPRAZOLE [Concomitant]
     Indication: GASTRITIS
     Dosage: 40 MG, 1X/DAY
  3. PRISTIQ [Suspect]
     Indication: ANXIETY
     Dosage: 50 MG, 1X/DAY
     Route: 048
     Dates: start: 20100209
  4. LEXAPRO [Suspect]
     Indication: DEPRESSION
     Dosage: 10 MG, 1X/DAY
     Dates: start: 20090414, end: 20110208
  5. EUTHYROX [Concomitant]
     Indication: HYPOTHYROIDISM
     Dosage: 100 UG, 1X/DAY
     Route: 048
  6. LORAZEPAM [Concomitant]
     Indication: SLEEP DISORDER
     Dosage: 1 MG, WEEKLY
  7. CELEBREX [Concomitant]
     Indication: MYALGIA
     Dosage: 200 MG, OCCASIONALLY
  8. PRISTIQ [Suspect]
     Indication: DEPRESSION
  9. CELLULASE/DEHYDROCHOLIC ACID/METOCLOPRAMIDE/ PANCREATIN/PEPSIN/SIMETIC [Concomitant]
     Indication: GASTRITIS
     Dosage: 1 DF, 1X/DAY
  10. BIOFENAC [Concomitant]
     Indication: THROAT IRRITATION
     Dosage: 75 MG, 1X/DAY
  11. RABEPRAZOLE SODIUM [Concomitant]
     Indication: GASTRITIS
     Dosage: 20 MG, 1X/DAY
     Dates: start: 20100201
  12. FLUCONAZOLE [Concomitant]
     Indication: CANDIDIASIS
     Dosage: 150 MG, 1X/DAY
  13. LEVOCETIRIZINE [Concomitant]
     Indication: DIZZINESS
     Dosage: 1 DF, 1X/DAY

REACTIONS (7)
  - BODY MASS INDEX INCREASED [None]
  - WEIGHT FLUCTUATION [None]
  - WEIGHT LOSS POOR [None]
  - SWELLING [None]
  - WEIGHT DECREASED [None]
  - FLUID RETENTION [None]
  - WEIGHT INCREASED [None]
